FAERS Safety Report 4898973-6 (Version None)
Quarter: 2006Q1

REPORT INFORMATION
  Report Type: 
  Country: None (occurrence: None)
  Receive Date: 20060127
  Receipt Date: 20060111
  Transmission Date: 20060701
  Serious: Yes (Hospitalization)
  Sender: FDA-Public Use
  Company Number: US200601002328

PATIENT
  Sex: Male

DRUGS (2)
  1. CIALIS [Suspect]
     Dosage: 10 MG
     Dates: start: 20050701
  2. MIRALAX [Concomitant]

REACTIONS (2)
  - BLOOD THYROID STIMULATING HORMONE DECREASED [None]
  - VISION BLURRED [None]
